FAERS Safety Report 4689024-7 (Version None)
Quarter: 2005Q2

REPORT INFORMATION
  Report Type: 
  Country: None (occurrence: None)
  Receive Date: 20050613
  Receipt Date: 20050601
  Transmission Date: 20051028
  Serious: Yes (Hospitalization, Other)
  Sender: FDA-Public Use
  Company Number: US-MERCK-0506USA00566

PATIENT
  Age: 47 Year
  Sex: Female
  Weight: 82 kg

DRUGS (16)
  1. BUMETANIDE [Concomitant]
     Indication: HYPERTENSION
     Route: 065
     Dates: start: 20030101
  2. ULTRAM [Concomitant]
     Route: 065
     Dates: start: 19990101
  3. NEURONTIN [Concomitant]
     Indication: PAIN
     Route: 065
     Dates: start: 20000101, end: 20010101
  4. VICODIN [Concomitant]
     Route: 065
  5. VIOXX [Suspect]
     Indication: PAIN
     Route: 048
     Dates: start: 20001101, end: 20041101
  6. VIOXX [Suspect]
     Route: 048
     Dates: start: 20001226
  7. SEREVENT [Concomitant]
     Route: 055
  8. NAPROXEN [Concomitant]
     Route: 065
  9. ULTRACET [Concomitant]
     Route: 065
  10. NORVASC [Concomitant]
     Indication: CARDIAC DISORDER
     Route: 065
     Dates: start: 19990101, end: 20040101
  11. CLONAZEPAM [Concomitant]
     Indication: ANXIETY
     Route: 065
     Dates: start: 20020101
  12. AMITRIPTYLINE HYDROCHLORIDE [Concomitant]
     Indication: ANTIDEPRESSANT THERAPY
     Route: 065
     Dates: start: 20020101
  13. LISINOPRIL [Concomitant]
     Route: 065
     Dates: start: 20020101, end: 20040101
  14. ELAVIL [Concomitant]
     Indication: DEPRESSION
     Route: 065
     Dates: start: 20020703, end: 20030101
  15. COZAAR [Concomitant]
     Indication: HYPERTENSION
     Route: 065
     Dates: start: 20030101, end: 20050103
  16. CARDIZEM [Concomitant]
     Indication: CARDIAC DISORDER
     Route: 065

REACTIONS (41)
  - ABDOMINAL PAIN [None]
  - AMNESIA [None]
  - ANXIETY [None]
  - ARTHRITIS [None]
  - ASTHMA [None]
  - ATHEROSCLEROSIS [None]
  - CARDIAC FAILURE CONGESTIVE [None]
  - CARDIAC VALVE DISEASE [None]
  - CEREBROVASCULAR ACCIDENT [None]
  - CHEST PAIN [None]
  - CHRONIC OBSTRUCTIVE PULMONARY DISEASE [None]
  - CONSTIPATION [None]
  - CORONARY ARTERY DISEASE [None]
  - DEEP VEIN THROMBOSIS [None]
  - DEPRESSION [None]
  - DERMATITIS [None]
  - DIABETES MELLITUS [None]
  - DIZZINESS [None]
  - FALL [None]
  - FIBROMYALGIA [None]
  - GASTROOESOPHAGEAL REFLUX DISEASE [None]
  - HAEMATOCHEZIA [None]
  - HEART RATE INCREASED [None]
  - HEMIPARESIS [None]
  - HERPES SIMPLEX [None]
  - HYPERTENSION [None]
  - HYPOAESTHESIA [None]
  - INFLAMMATION [None]
  - LIVER DISORDER [None]
  - MICROCYTIC ANAEMIA [None]
  - MYOCARDIAL INFARCTION [None]
  - NAUSEA [None]
  - OEDEMA PERIPHERAL [None]
  - PANIC ATTACK [None]
  - PHARYNGOLARYNGEAL PAIN [None]
  - POST-TRAUMATIC STRESS DISORDER [None]
  - RHEUMATOID ARTHRITIS [None]
  - SUICIDE ATTEMPT [None]
  - ULCER [None]
  - VISION BLURRED [None]
  - WEIGHT INCREASED [None]
